FAERS Safety Report 17584661 (Version 2)
Quarter: 2020Q4

REPORT INFORMATION
  Report Type: Spontaneous
  Country: US (occurrence: US)
  Receive Date: 20200326
  Receipt Date: 20201012
  Transmission Date: 20210113
  Serious: Yes (Other)
  Sender: FDA-Public Use
  Company Number: US-LUPIN PHARMACEUTICALS INC.-2020-01118

PATIENT
  Age: 60 Year
  Sex: Male
  Weight: 103.4 kg

DRUGS (4)
  1. LISINOPRIL TABLETS USP, 10MG [Suspect]
     Active Substance: LISINOPRIL
     Indication: HYPERTENSION
     Dosage: UNK UNK, QD (LAST SEVERAL REFILLS)
     Route: 048
  2. LISINOPRIL TABLETS USP, 10MG [Suspect]
     Active Substance: LISINOPRIL
     Dosage: 5 MILLIGRAM, QD (HALF OF A 10 MG TABLET)
     Route: 048
  3. LISINOPRIL TABLETS USP, 10MG [Suspect]
     Active Substance: LISINOPRIL
     Dosage: 2.5 MILLIGRAM, EVERY COUPLES OF DAYS (QUARTER OF THE 10 MG TABLET)
     Route: 048
  4. LISINOPRIL TABLETS USP, 10MG [Suspect]
     Active Substance: LISINOPRIL
     Dosage: UNK UNK, QD (NEW REFILL)
     Route: 048
     Dates: start: 20191222

REACTIONS (7)
  - Asthenia [Recovered/Resolved]
  - Blood pressure increased [Recovered/Resolved]
  - Product quality issue [Unknown]
  - Feeling abnormal [Recovered/Resolved]
  - Hypotension [Recovered/Resolved]
  - Heart rate increased [Recovered/Resolved]
  - Wrong technique in product usage process [Unknown]

NARRATIVE: CASE EVENT DATE: 20191225
